FAERS Safety Report 19375117 (Version 1)
Quarter: 2021Q2

REPORT INFORMATION
  Report Type: Spontaneous
  Country: US (occurrence: US)
  Receive Date: 20210604
  Receipt Date: 20210604
  Transmission Date: 20210717
  Serious: No
  Sender: FDA-Public Use
  Company Number: US-THERAPEUTICSMD-2021TMD01034

PATIENT
  Sex: Female
  Weight: 68.04 kg

DRUGS (2)
  1. ANNOVERA [Suspect]
     Active Substance: ETHINYL ESTRADIOL\SEGESTERONE ACETATE
     Indication: CONTRACEPTION
     Dosage: 1 RING;  21 DAYS INSERTED, 7 DAYS OUT
     Route: 067
     Dates: start: 202012, end: 20210224
  2. VALTREX [Concomitant]
     Active Substance: VALACYCLOVIR HYDROCHLORIDE

REACTIONS (3)
  - Device issue [Recovered/Resolved]
  - Migraine [Unknown]
  - Vulvovaginal discomfort [Recovered/Resolved]
